FAERS Safety Report 21891659 (Version 1)
Quarter: 2023Q1

REPORT INFORMATION
  Report Type: Spontaneous
  Country: CZ (occurrence: CZ)
  Receive Date: 20230120
  Receipt Date: 20230120
  Transmission Date: 20230418
  Serious: Yes (Life-Threatening, Other)
  Sender: FDA-Public Use
  Company Number: None

PATIENT
  Age: 59 Year
  Sex: Male
  Weight: 64 kg

DRUGS (10)
  1. OPDIVO [Suspect]
     Active Substance: NIVOLUMAB
     Indication: Renal cancer
     Dosage: APPLIED IN TWO-WEEK CYCLES. IN TOTAL, 9 CYCLES WERE APPLIED
     Route: 042
     Dates: start: 20220708, end: 20221212
  2. SUTENT [Suspect]
     Active Substance: SUNITINIB MALATE
     Indication: Renal cancer
     Dosage: DOSAGE: 37,5 MG 1X DAILY FOR 2 WEEKS, THEN 1 WEEK BREAK
     Route: 048
     Dates: start: 20211217, end: 20220428
  3. CALCIUM CARBONATE [Concomitant]
     Active Substance: CALCIUM CARBONATE
     Indication: Product used for unknown indication
  4. AMLODIPINE BESYLATE\PERINDOPRIL ARGININE [Concomitant]
     Active Substance: AMLODIPINE BESYLATE\PERINDOPRIL ARGININE
     Indication: Product used for unknown indication
     Dosage: 1-0-0
     Route: 048
  5. ACETAMINOPHEN\TRAMADOL HYDROCHLORIDE [Concomitant]
     Active Substance: ACETAMINOPHEN\TRAMADOL HYDROCHLORIDE
     Indication: Product used for unknown indication
     Dosage: USED AS NEEDED
     Route: 048
  6. IBANDRONATE SODIUM [Concomitant]
     Active Substance: IBANDRONATE SODIUM
     Indication: Product used for unknown indication
     Dosage: 1-0-0 ON EMPTY STOMACH
     Route: 048
  7. OMEPRAZOLE [Concomitant]
     Active Substance: OMEPRAZOLE
     Indication: Product used for unknown indication
     Dosage: 1-0-0
     Route: 048
  8. METOCLOPRAMIDE HYDROCHLORIDE [Concomitant]
     Active Substance: METOCLOPRAMIDE HYDROCHLORIDE
     Indication: Nausea
     Dosage: AS NEEDED, WHEN NAUSEOUS
     Route: 048
  9. NIMESULIDE [Concomitant]
     Active Substance: NIMESULIDE
     Indication: Pain
     Dosage: INTERMITENTLY WHEN NEEDED, WITHDRAWN DUE TO HEPATOPATHY
     Route: 048
     Dates: start: 2021, end: 202210
  10. BUPRENORPHINE [Concomitant]
     Active Substance: BUPRENORPHINE
     Indication: Product used for unknown indication
     Dosage: CHANGED EVERY 72 HOURS
     Route: 062

REACTIONS (2)
  - Autoimmune hepatitis [Recovering/Resolving]
  - Autoimmune dermatitis [Recovering/Resolving]

NARRATIVE: CASE EVENT DATE: 20220901
